FAERS Safety Report 7824580-9 (Version None)
Quarter: 2011Q4

REPORT INFORMATION
  Report Type: 
  Country: None (occurrence: None)
  Receive Date: 20111019
  Receipt Date: 20111005
  Transmission Date: 20120403
  Serious: Yes (Hospitalization, Other)
  Sender: FDA-Public Use
  Company Number: US-ELI_LILLY_AND_COMPANY-US201110002250

PATIENT
  Sex: Male

DRUGS (2)
  1. LISINOPRIL                              /USA/ [Concomitant]
  2. CYMBALTA [Suspect]
     Indication: PAIN
     Dosage: 60 MG, UNK
     Dates: start: 20100101

REACTIONS (3)
  - SYNCOPE [None]
  - ROAD TRAFFIC ACCIDENT [None]
  - OFF LABEL USE [None]
